FAERS Safety Report 7831773-3 (Version None)
Quarter: 2011Q4

REPORT INFORMATION
  Report Type: 
  Country: None (occurrence: None)
  Receive Date: 20111021
  Receipt Date: 20111011
  Transmission Date: 20120403
  Serious: Yes (Hospitalization)
  Sender: FDA-Public Use
  Company Number: PHHY2011BR82889

PATIENT
  Age: 76 Year
  Sex: Male

DRUGS (9)
  1. INSULIN RETARD [Suspect]
     Dosage: UNK UKN, UNK
  2. HYDROCHLOROTHIAZIDE [Suspect]
     Dosage: UNK UKN, UNK
  3. LEVOFLOXACIN [Suspect]
     Dosage: 500MG DAILY
     Route: 051
  4. LEVOFLOXACIN [Suspect]
     Dosage: 500MG DAILY
     Route: 048
  5. CARBAMAZEPINE [Suspect]
     Indication: PARTIAL SEIZURES
     Dosage: 300 MG, TID
  6. METFORMIN HCL [Suspect]
     Dosage: UNK UKN, UNK
  7. CAPTOPRIL [Suspect]
     Indication: HYPERTENSION
     Dosage: 50 MG, TID
  8. AMINOFILIN - SLOW RELEASE [Suspect]
     Dosage: UNK UKN, UNK
  9. OMEPRAZOLE [Suspect]
     Dosage: UNK UKN, UNK

REACTIONS (19)
  - BLOOD GLUCOSE INCREASED [None]
  - WEIGHT INCREASED [None]
  - HIGH DENSITY LIPOPROTEIN DECREASED [None]
  - HYPERTENSION [None]
  - HEART RATE INCREASED [None]
  - BLOOD CHOLESTEROL INCREASED [None]
  - ELECTROCARDIOGRAM REPOLARISATION ABNORMALITY [None]
  - LEFT ATRIAL DILATATION [None]
  - VENTRICULAR HYPERTROPHY [None]
  - EJECTION FRACTION DECREASED [None]
  - CORONARY ARTERY DISEASE [None]
  - LEUKOCYTOSIS [None]
  - DIASTOLIC DYSFUNCTION [None]
  - MYOCARDIAL CALCIFICATION [None]
  - COUGH [None]
  - ALBUMINURIA [None]
  - DILATATION VENTRICULAR [None]
  - LOW DENSITY LIPOPROTEIN INCREASED [None]
  - BODY MASS INDEX INCREASED [None]
